FAERS Safety Report 25503606 (Version 1)
Quarter: 2025Q3

REPORT INFORMATION
  Report Type: Report from Study
  Country: US (occurrence: US)
  Receive Date: 20250702
  Receipt Date: 20250702
  Transmission Date: 20251021
  Serious: Yes (Other)
  Sender: MYLAN
  Company Number: US-MYLANLABS-2024M1022589

PATIENT
  Sex: Female

DRUGS (2)
  1. DILANTIN [Suspect]
     Active Substance: PHENYTOIN
     Indication: Product used for unknown indication
  2. ZINC [Concomitant]
     Active Substance: ZINC
     Indication: Product used for unknown indication

REACTIONS (7)
  - Blindness [Unknown]
  - Oral pain [Unknown]
  - Tooth infection [Unknown]
  - Alopecia [Unknown]
  - Tooth loss [Unknown]
  - Weight decreased [Unknown]
  - Weight increased [Unknown]
